FAERS Safety Report 7583691-6 (Version None)
Quarter: 2011Q2

REPORT INFORMATION
  Report Type: 
  Country: None (occurrence: None)
  Receive Date: 20110630
  Receipt Date: 20110316
  Transmission Date: 20111010
  Serious: Yes (Hospitalization)
  Sender: FDA-Public Use
  Company Number: B0706796A

PATIENT
  Sex: Female
  Weight: 42 kg

DRUGS (6)
  1. VEPESID [Suspect]
     Indication: STEM CELL TRANSPLANT
     Dosage: 250MGM2 PER DAY
     Route: 042
     Dates: start: 20070926, end: 20070928
  2. KYTRIL [Concomitant]
     Dosage: 6MG PER DAY
     Route: 042
     Dates: end: 20070930
  3. CARBOPLATIN [Suspect]
     Indication: STEM CELL TRANSPLANT
     Dosage: 200MGM2 PER DAY
     Route: 042
     Dates: start: 20070926, end: 20070928
  4. BETAMETHASONE [Concomitant]
     Dosage: 8MG PER DAY
     Route: 042
     Dates: end: 20070930
  5. ALKERAN [Suspect]
     Indication: STEM CELL TRANSPLANT
     Dosage: 80MGM2 PER DAY
     Route: 042
     Dates: start: 20070929, end: 20070930
  6. ALLOID G [Concomitant]
     Dosage: 30ML PER DAY
     Route: 002
     Dates: end: 20071016

REACTIONS (3)
  - STOMATITIS [None]
  - PYREXIA [None]
  - C-REACTIVE PROTEIN INCREASED [None]
